FAERS Safety Report 22772484 (Version 5)
Quarter: 2023Q4

REPORT INFORMATION
  Report Type: Report from Study
  Country: US (occurrence: US)
  Receive Date: 20230801
  Receipt Date: 20231215
  Transmission Date: 20240109
  Serious: No
  Sender: FDA-Public Use
  Company Number: US-002147023-NVSC2023US167833

PATIENT
  Sex: Female

DRUGS (7)
  1. ENTRESTO [Suspect]
     Active Substance: SACUBITRIL\VALSARTAN
     Indication: Product used for unknown indication
     Dosage: 1 DOSAGE FORM, QD
     Route: 065
     Dates: start: 20230726
  2. ENTRESTO [Suspect]
     Active Substance: SACUBITRIL\VALSARTAN
     Dosage: 200 MG, QD (97/103 MG)
     Route: 065
  3. ENTRESTO [Suspect]
     Active Substance: SACUBITRIL\VALSARTAN
     Dosage: 100 MG (49/51 MG)
     Route: 065
  4. ENTRESTO [Suspect]
     Active Substance: SACUBITRIL\VALSARTAN
     Dosage: 97/103 MG, QD
     Route: 065
     Dates: start: 20230726
  5. ENTRESTO [Suspect]
     Active Substance: SACUBITRIL\VALSARTAN
     Dosage: 49/51 MG
     Route: 065
  6. ROSUVASTATIN [Concomitant]
     Active Substance: ROSUVASTATIN
     Indication: Product used for unknown indication
     Dosage: UNK
     Route: 065
     Dates: start: 202212
  7. LOSARTAN [Concomitant]
     Active Substance: LOSARTAN
     Indication: Product used for unknown indication
     Dosage: UNK
     Route: 065
     Dates: start: 202212, end: 202307

REACTIONS (17)
  - Sneezing [Not Recovered/Not Resolved]
  - Nasal pruritus [Recovering/Resolving]
  - Scratch [Unknown]
  - Abdominal discomfort [Recovered/Resolved]
  - Cough [Not Recovered/Not Resolved]
  - Ear pruritus [Recovering/Resolving]
  - Upper-airway cough syndrome [Unknown]
  - Oral discomfort [Recovering/Resolving]
  - Ear discomfort [Unknown]
  - Contusion [Recovering/Resolving]
  - Dizziness [Recovering/Resolving]
  - Blood cholesterol decreased [Unknown]
  - Inappropriate schedule of product administration [Unknown]
  - Blood pressure fluctuation [Recovering/Resolving]
  - Drug ineffective [Unknown]
  - Sinus disorder [Not Recovered/Not Resolved]
  - Nausea [Recovered/Resolved]

NARRATIVE: CASE EVENT DATE: 20230101
